FAERS Safety Report 4477580-3 (Version None)
Quarter: 2004Q4

REPORT INFORMATION
  Report Type: 
  Country: None (occurrence: None)
  Receive Date: 20041012
  Receipt Date: 20041001
  Transmission Date: 20050328
  Serious: Yes (Death)
  Sender: FDA-Public Use
  Company Number: 2004UW20788

PATIENT
  Age: 45 Year

DRUGS (3)
  1. SEROQUEL [Suspect]
  2. METOPROLOL NM [Suspect]
  3. PHENYTOIN [Suspect]

REACTIONS (2)
  - COMPLETED SUICIDE [None]
  - MULTIPLE DRUG OVERDOSE INTENTIONAL [None]
